FAERS Safety Report 22023796 (Version 1)
Quarter: 2023Q1

REPORT INFORMATION
  Report Type: Spontaneous
  Country: JP (occurrence: None)
  Receive Date: 20230223
  Receipt Date: 20230223
  Transmission Date: 20230418
  Serious: Yes (Hospitalization, Other)
  Sender: FDA-Public Use
  Company Number: JP-Merck Healthcare KGaA-9377902

PATIENT
  Age: 8 Decade
  Sex: Male

DRUGS (1)
  1. METGLUCO [Suspect]
     Active Substance: METFORMIN HYDROCHLORIDE
     Indication: Diabetes mellitus
     Route: 048

REACTIONS (4)
  - Autoimmune neuropathy [Recovering/Resolving]
  - Neuropathy peripheral [Recovering/Resolving]
  - Vitamin B12 deficiency [Recovering/Resolving]
  - Anaemia macrocytic [Recovering/Resolving]
